FAERS Safety Report 9775345 (Version 3)
Quarter: 2014Q1

REPORT INFORMATION
  Report Type: Spontaneous
  Country: FR (occurrence: FR)
  Receive Date: 20131220
  Receipt Date: 20140107
  Transmission Date: 20141002
  Serious: Yes (Death)
  Sender: FDA-Public Use
  Company Number: FR-PFIZER INC-2013360502

PATIENT
  Age: 73 Year
  Sex: Male

DRUGS (13)
  1. ADRIBLASTINE [Suspect]
     Indication: T-CELL LYMPHOMA
     Dosage: 70 MG, CYCLIC, 1 COURSE
     Route: 042
     Dates: start: 20131030, end: 20131030
  2. SOLU-MEDROL [Suspect]
     Indication: T-CELL LYMPHOMA
     Dosage: 100 MG, 1X/DAY
     Route: 042
     Dates: start: 20131030, end: 20131103
  3. OXALIPLATIN TEVA [Suspect]
     Indication: T-CELL LYMPHOMA
     Dosage: 140 MG, CYCLIC, 5 COURSES
     Route: 042
     Dates: start: 20130819, end: 20131016
  4. VINCRISTINE HOSPIRA [Suspect]
     Indication: T-CELL LYMPHOMA
     Dosage: 2 MG, CYCLIC, (2 MG/ML) 1 COURSE
     Route: 042
     Dates: start: 20131030, end: 20131030
  5. GEMZAR [Suspect]
     Indication: T-CELL LYMPHOMA
     Dosage: 1400 MG, CYCLIC, 5 COURSES
     Route: 042
     Dates: start: 20130819, end: 20131016
  6. ENDOXAN [Suspect]
     Indication: T-CELL LYMPHOMA
     Dosage: 1 G, CYCLIC, 1 COURSE
     Route: 042
     Dates: start: 20131030, end: 20131030
  7. KARDEGIC [Concomitant]
     Dosage: 160 MG, DAILY
     Dates: start: 201305
  8. LASILIX [Concomitant]
     Dosage: 20 MG, DAILY
     Dates: start: 201305
  9. EUPANTOL [Concomitant]
     Dosage: 20 MG, DAILY
     Dates: start: 201305
  10. TRIATEC [Concomitant]
     Dosage: 1.25 MG, DAILY
     Dates: start: 201305
  11. PROCORALAN [Concomitant]
     Dosage: 5 MG, DAILY
     Dates: start: 201305
  12. SOLUPRED [Concomitant]
     Dosage: 60 MG, DAILY
     Dates: start: 201305
  13. STILNOX [Concomitant]
     Dosage: 1 DF, DAILY
     Dates: start: 201305

REACTIONS (1)
  - Interstitial lung disease [Fatal]
